FAERS Safety Report 6208905-6 (Version None)
Quarter: 2009Q2

REPORT INFORMATION
  Report Type: 
  Country: None (occurrence: None)
  Receive Date: 20090529
  Receipt Date: 20090521
  Transmission Date: 20091009
  Serious: Yes (Hospitalization)
  Sender: FDA-Public Use
  Company Number: B0576276A

PATIENT
  Sex: Male
  Weight: 78 kg

DRUGS (4)
  1. ARIXTRA [Suspect]
     Indication: ACUTE CORONARY SYNDROME
     Route: 065
     Dates: start: 20090512, end: 20090519
  2. WARFARIN SODIUM [Concomitant]
     Indication: ACUTE CORONARY SYNDROME
     Dosage: 5MG PER DAY
     Route: 065
     Dates: start: 20090512
  3. MONOPRIL [Concomitant]
     Indication: ACUTE CORONARY SYNDROME
     Dosage: 5MG PER DAY
     Route: 065
     Dates: start: 20090511
  4. BISOPROLOL FUMARATE [Concomitant]
     Indication: ACUTE CORONARY SYNDROME
     Dosage: 5MG PER DAY
     Route: 065

REACTIONS (4)
  - CHEST PAIN [None]
  - HEPATIC HAEMATOMA [None]
  - PAIN [None]
  - RETROPERITONEAL HAEMATOMA [None]
